FAERS Safety Report 24589392 (Version 1)
Quarter: 2024Q4

REPORT INFORMATION
  Report Type: Spontaneous
  Country: US (occurrence: None)
  Receive Date: 20241106
  Receipt Date: 20241106
  Transmission Date: 20250115
  Serious: Yes (Disabling)
  Sender: Public
  Company Number: None

PATIENT
  Age: 46 Year
  Sex: Male
  Weight: 81 kg

DRUGS (10)
  1. FINASTERIDE [Suspect]
     Active Substance: FINASTERIDE
     Indication: Alopecia
     Dosage: OTHER QUANTITY : 1 TABLET(S);?FREQUENCY : DAILY;?
     Route: 048
  2. ADDERALL [Concomitant]
     Active Substance: AMPHETAMINE ASPARTATE\AMPHETAMINE SULFATE\DEXTROAMPHETAMINE SACCHARATE\DEXTROAMPHETAMINE SULFATE
  3. LOSARTAN [Concomitant]
     Active Substance: LOSARTAN
  4. TADALAFIL [Concomitant]
     Active Substance: TADALAFIL
  5. WELLBUTRIN [Concomitant]
     Active Substance: BUPROPION HYDROCHLORIDE
  6. FISH OIL [Concomitant]
     Active Substance: FISH OIL
  7. VITAMIN D [Concomitant]
     Active Substance: VITAMIN D NOS
  8. ZINC [Concomitant]
     Active Substance: ZINC
  9. CREATINE [Concomitant]
     Active Substance: CREATINE
  10. CITRULLINE [Concomitant]
     Active Substance: CITRULLINE

REACTIONS (5)
  - Insomnia [None]
  - Cognitive disorder [None]
  - Brain fog [None]
  - Apathy [None]
  - Amnesia [None]

NARRATIVE: CASE EVENT DATE: 20221108
